FAERS Safety Report 20895043 (Version 4)
Quarter: 2022Q3

REPORT INFORMATION
  Report Type: Spontaneous
  Country: JP (occurrence: JP)
  Receive Date: 20220531
  Receipt Date: 20220919
  Transmission Date: 20221026
  Serious: Yes (Hospitalization, Other)
  Sender: FDA-Public Use
  Company Number: JP-TAKEDA-2022TJP050293

PATIENT

DRUGS (2)
  1. ZEJULA [Suspect]
     Active Substance: NIRAPARIB
     Indication: Ovarian cancer
     Dosage: 200 MG
     Route: 048
     Dates: start: 20220418, end: 20220509
  2. ZEJULA [Suspect]
     Active Substance: NIRAPARIB
     Dosage: 100 MG
     Route: 048
     Dates: start: 20220531, end: 20220721

REACTIONS (5)
  - Ovarian cancer [Unknown]
  - Disease progression [Unknown]
  - Platelet count decreased [Recovered/Resolved]
  - Enterocolitis [Recovered/Resolved]
  - Ileus [Not Recovered/Not Resolved]

NARRATIVE: CASE EVENT DATE: 20220509
